FAERS Safety Report 11147653 (Version 2)
Quarter: 2021Q2

REPORT INFORMATION
  Report Type: Spontaneous
  Country: US (occurrence: US)
  Receive Date: 20150529
  Receipt Date: 20210516
  Transmission Date: 20210716
  Serious: Yes (Hospitalization, Other)
  Sender: FDA-Public Use
  Company Number: US-AUROBINDO-AUR-APL-2015-04531

PATIENT
  Age: 59 Year
  Sex: Female
  Weight: 77.5 kg

DRUGS (13)
  1. VENLAFAXINE [Suspect]
     Active Substance: VENLAFAXINE HYDROCHLORIDE
     Indication: BORDERLINE PERSONALITY DISORDER
     Dosage: 225 MILLIGRAM, ONCE A DAY
     Route: 065
  2. VENLAFAXINE [Suspect]
     Active Substance: VENLAFAXINE HYDROCHLORIDE
     Dosage: 225 MILLIGRAM, ONCE A DAY
     Route: 065
  3. VENLAFAXINE [Suspect]
     Active Substance: VENLAFAXINE HYDROCHLORIDE
     Indication: DEPRESSION
     Dosage: 187.5 MILLIGRAM, DAILY
     Route: 065
  4. TRAZODONE [Suspect]
     Active Substance: TRAZODONE HYDROCHLORIDE
     Indication: BORDERLINE PERSONALITY DISORDER
  5. MIDAZOLAM. [Suspect]
     Active Substance: MIDAZOLAM
     Indication: SEDATION
     Dosage: 1 TO 5 MG/H
     Route: 065
  6. VENLAFAXINE [Suspect]
     Active Substance: VENLAFAXINE HYDROCHLORIDE
     Dosage: 37.5 MILLIGRAM, DAILY
     Route: 065
  7. PHENYLEPHRINE [Suspect]
     Active Substance: PHENYLEPHRINE HYDROCHLORIDE
     Indication: HYPOTENSION
     Dosage: UNK
     Route: 040
  8. TRAZODONE [Suspect]
     Active Substance: TRAZODONE HYDROCHLORIDE
     Indication: DEPRESSION
     Dosage: 100 MILLIGRAM, DAILY AS NEEDED
     Route: 065
  9. TRAZODONE [Suspect]
     Active Substance: TRAZODONE HYDROCHLORIDE
     Indication: ANXIETY
  10. FENTANYL. [Suspect]
     Active Substance: FENTANYL
     Indication: SEDATION
     Dosage: 12.5 TO 75 MCG/H.
     Route: 065
  11. LISINOPRIL. [Concomitant]
     Active Substance: LISINOPRIL
     Indication: CARDIAC FAILURE CONGESTIVE
     Dosage: UNK
     Route: 065
  12. VENLAFAXINE [Suspect]
     Active Substance: VENLAFAXINE HYDROCHLORIDE
     Indication: ANXIETY
     Dosage: 100 MILLIGRAM, TWO TIMES A DAY
     Route: 065
  13. METHYLENE BLUE. [Concomitant]
     Active Substance: METHYLENE BLUE
     Indication: HYPOTENSION
     Dosage: 2 MILLIGRAM/KILOGRAM
     Route: 065

REACTIONS (12)
  - Serotonin syndrome [Recovered/Resolved]
  - Eye movement disorder [Recovered/Resolved]
  - Acute kidney injury [Recovered/Resolved]
  - Clonus [Recovered/Resolved]
  - Muscle twitching [Recovered/Resolved]
  - Toxic encephalopathy [Recovered/Resolved]
  - Dyskinesia [Recovered/Resolved]
  - Posturing [Recovered/Resolved]
  - Cognitive disorder [Recovered/Resolved]
  - Tremor [Recovered/Resolved]
  - Nystagmus [Recovered/Resolved]
  - Muscle rigidity [Recovered/Resolved]
